FAERS Safety Report 9299355 (Version 2)
Quarter: 2013Q2

REPORT INFORMATION
  Report Type: Spontaneous
  Country: BR (occurrence: BR)
  Receive Date: 20130517
  Receipt Date: 20130606
  Transmission Date: 20140414
  Serious: Yes (Other)
  Sender: FDA-Public Use
  Company Number: BR-AMGEN-BRASP2013034534

PATIENT
  Age: 53 Year
  Sex: Female
  Weight: 40 kg

DRUGS (2)
  1. ENBREL [Suspect]
     Indication: RHEUMATOID ARTHRITIS
     Dosage: UNK
     Route: 065
  2. ENBREL [Suspect]
     Dosage: 50 MG, ONCE A WEEK
     Route: 058
     Dates: end: 201303

REACTIONS (1)
  - Gastric disorder [Unknown]
